FAERS Safety Report 5950404-0 (Version None)
Quarter: 2008Q4

REPORT INFORMATION
  Report Type: 
  Country: None (occurrence: None)
  Receive Date: 20081112
  Receipt Date: 20081028
  Transmission Date: 20090506
  Serious: Yes (Hospitalization)
  Sender: FDA-Public Use
  Company Number: JP-GENENTECH-257452

PATIENT
  Sex: Male
  Weight: 50 kg

DRUGS (4)
  1. AVASTIN [Suspect]
     Indication: COLON CANCER RECURRENT
     Dosage: 5 MG/KG, Q2W
     Route: 041
     Dates: start: 20080225, end: 20080707
  2. OXALIPLATIN [Suspect]
     Indication: COLON CANCER RECURRENT
     Dosage: 130 MG, UNK
     Route: 041
     Dates: start: 20080225, end: 20080707
  3. LEUCOVORIN CALCIUM [Suspect]
     Indication: COLON CANCER RECURRENT
     Dosage: 150 MG, Q2W
     Route: 041
     Dates: start: 20080225, end: 20080708
  4. FLUOROURACIL [Suspect]
     Indication: COLON CANCER RECURRENT
     Dosage: 600 MG, 2/WEEK/Q2W
     Dates: start: 20080225, end: 20080708

REACTIONS (4)
  - BLOOD CREATINE PHOSPHOKINASE INCREASED [None]
  - DIARRHOEA [None]
  - FEBRILE NEUTROPENIA [None]
  - RENAL FAILURE ACUTE [None]
